FAERS Safety Report 6933600-5 (Version None)
Quarter: 2010Q3

REPORT INFORMATION
  Report Type: 
  Country: None (occurrence: None)
  Receive Date: 20100820
  Receipt Date: 20100811
  Transmission Date: 20110219
  Serious: Yes (Other)
  Sender: FDA-Public Use
  Company Number: US-JNJFOC-20100804538

PATIENT
  Sex: Female
  Weight: 35.38 kg

DRUGS (3)
  1. DURAGESIC-100 [Suspect]
     Indication: BACK PAIN
     Route: 062
  2. DURAGESIC-100 [Suspect]
     Route: 062
  3. THEOPHYLLINE [Concomitant]
     Indication: EMPHYSEMA
     Route: 048

REACTIONS (8)
  - ABNORMAL LOSS OF WEIGHT [None]
  - ACNE [None]
  - FEELING ABNORMAL [None]
  - HEART RATE IRREGULAR [None]
  - HYPERHIDROSIS [None]
  - SPLENECTOMY [None]
  - TREATMENT NONCOMPLIANCE [None]
  - TREMOR [None]
